FAERS Safety Report 8365351-7 (Version None)
Quarter: 2012Q2

REPORT INFORMATION
  Report Type: 
  Country: None (occurrence: None)
  Receive Date: 20120516
  Receipt Date: 20120509
  Transmission Date: 20120825
  Serious: Yes (Other)
  Sender: FDA-Public Use
  Company Number: BR-PFIZER INC-2011289433

PATIENT
  Age: 70 Year
  Sex: Male
  Weight: 82 kg

DRUGS (13)
  1. FINASTERIDE [Concomitant]
  2. GLYBURIDE [Concomitant]
     Indication: DIABETES MELLITUS
     Dosage: UNK
     Dates: start: 20060101
  3. SOMALGIN [Concomitant]
     Indication: CORONARY ARTERY DISEASE
     Dosage: UNK
     Dates: start: 20090101
  4. DOXAZOSIN [Concomitant]
  5. METOPROLOL SUCCINATE [Concomitant]
     Indication: HYPERTENSION
     Dosage: UNK
     Dates: start: 20060101
  6. CAVERJECT [Suspect]
  7. VITALUX PLUS [Concomitant]
     Indication: RETINAL DISORDER
  8. LIPLESS [Concomitant]
     Indication: BLOOD TRIGLYCERIDES INCREASED
     Dosage: UNK
     Dates: start: 20060101
  9. VITALUX PLUS [Concomitant]
     Indication: MACULAR DEGENERATION
     Dosage: UNK
  10. METFORMIN [Concomitant]
     Indication: DIABETES MELLITUS
     Dosage: UNK
     Dates: start: 20060101
  11. ENALAPRIL [Concomitant]
     Indication: HYPERTENSION
     Dosage: UNK
     Dates: start: 20060101
  12. CAVERJECT [Suspect]
     Indication: ERECTILE DYSFUNCTION
     Dosage: 5 UG
     Route: 017
     Dates: start: 20111119
  13. LIPITOR [Concomitant]
     Indication: BLOOD CHOLESTEROL INCREASED
     Dosage: UNK
     Dates: start: 20060101

REACTIONS (4)
  - INJECTION SITE HAEMORRHAGE [None]
  - DRUG EFFECT DECREASED [None]
  - SKIN DISCOLOURATION [None]
  - GENITAL ERYTHEMA [None]
